FAERS Safety Report 10420508 (Version 1)
Quarter: 2014Q3

REPORT INFORMATION
  Report Type: Spontaneous
  Country: US (occurrence: None)
  Receive Date: 20140709
  Receipt Date: 20140709
  Transmission Date: 20150326
  Serious: Yes (Other)
  Sender: FDA-Public Use
  Company Number: 1709339

PATIENT
  Age: 80 Year
  Sex: Male

DRUGS (2)
  1. (CARBOPLATIN) [Suspect]
     Active Substance: CARBOPLATIN
     Indication: CHEMOTHERAPY
     Dosage: NOT REPORTED, NOT REPORTED, UNKNOWN , UNKNOWN THERAPY DATES
  2. PACLITAXEL FOR INJECTION (PACLITAXEL) [Suspect]
     Active Substance: PACLITAXEL
     Indication: CHEMOTHERAPY
     Dosage: NOT REPORTED , NOT REPORTED, UNKNOWN , UNKNOWN THERAPY DATES

REACTIONS (1)
  - Diarrhoea infectious [None]
